FAERS Safety Report 7086246-5 (Version None)
Quarter: 2010Q4

REPORT INFORMATION
  Report Type: 
  Country: None (occurrence: None)
  Receive Date: 20101105
  Receipt Date: 20101027
  Transmission Date: 20110411
  Serious: Yes (Other)
  Sender: FDA-Public Use
  Company Number: GB-JNJFOC-20101100204

PATIENT
  Age: 68 Year
  Sex: Female
  Weight: 103 kg

DRUGS (1)
  1. REMICADE [Suspect]
     Indication: VASCULITIS
     Route: 042

REACTIONS (1)
  - NON-HODGKIN'S LYMPHOMA [None]
